FAERS Safety Report 22276857 (Version 1)
Quarter: 2023Q2

REPORT INFORMATION
  Report Type: Spontaneous
  Country: US (occurrence: US)
  Receive Date: 20230503
  Receipt Date: 20230503
  Transmission Date: 20230722
  Serious: No
  Sender: FDA-Public Use
  Company Number: US-SA-SAC20230501000331

PATIENT
  Sex: Female

DRUGS (24)
  1. DUPIXENT [Suspect]
     Active Substance: DUPILUMAB
     Indication: Illness
     Dosage: 600 MG, 1X
     Route: 058
     Dates: start: 202303, end: 202303
  2. DUPIXENT [Suspect]
     Active Substance: DUPILUMAB
     Dosage: 300 MG, QOW
     Route: 058
     Dates: start: 2023
  3. ARMODAFINIL [Concomitant]
     Active Substance: ARMODAFINIL
  4. TEMAZEPAM [Concomitant]
     Active Substance: TEMAZEPAM
  5. AZELASTINE [Concomitant]
     Active Substance: AZELASTINE
  6. MIDODRINE [Concomitant]
     Active Substance: MIDODRINE
  7. BUSPIRONE [Concomitant]
     Active Substance: BUSPIRONE HYDROCHLORIDE
  8. ALBUTEROL SULFATE [Concomitant]
     Active Substance: ALBUTEROL SULFATE
  9. ALPRAZOLAM [Concomitant]
     Active Substance: ALPRAZOLAM
  10. SUCRALFATE [Concomitant]
     Active Substance: SUCRALFATE
  11. ACETAMINOPHEN\HYDROCODONE [Concomitant]
     Active Substance: ACETAMINOPHEN\HYDROCODONE
  12. FAMOTIDINE [Concomitant]
     Active Substance: FAMOTIDINE
  13. METOCLOPRAMIDE [Concomitant]
     Active Substance: METOCLOPRAMIDE
  14. HYDROXYZINE [Concomitant]
     Active Substance: HYDROXYZINE HYDROCHLORIDE
  15. BRILINTA [Concomitant]
     Active Substance: TICAGRELOR
  16. ATORVASTATIN [Concomitant]
     Active Substance: ATORVASTATIN
  17. GABAPENTIN [Concomitant]
     Active Substance: GABAPENTIN
  18. ACETAMINOPHEN\BUTALBITAL [Concomitant]
     Active Substance: ACETAMINOPHEN\BUTALBITAL
  19. ESTRADIOL [Concomitant]
     Active Substance: ESTRADIOL
  20. ESCITALOPRAM [Concomitant]
     Active Substance: ESCITALOPRAM OXALATE
  21. SOLIFENACIN [Concomitant]
     Active Substance: SOLIFENACIN
  22. TACROLIMUS [Concomitant]
     Active Substance: TACROLIMUS
  23. TIZANIDINE [Concomitant]
     Active Substance: TIZANIDINE
  24. NITROGLYCERIN [Concomitant]
     Active Substance: NITROGLYCERIN

REACTIONS (5)
  - Rash [Unknown]
  - Pruritus [Unknown]
  - Contusion [Unknown]
  - Rash macular [Unknown]
  - Therapeutic response decreased [Unknown]

NARRATIVE: CASE EVENT DATE: 20230101
